FAERS Safety Report 24943590 (Version 2)
Quarter: 2025Q3

REPORT INFORMATION
  Report Type: Report from Study
  Country: US (occurrence: US)
  Receive Date: 20250207
  Receipt Date: 20250802
  Transmission Date: 20251021
  Serious: Yes (Other)
  Sender: ALEXION PHARMACEUTICALS
  Company Number: US-AstraZeneca-CH-00797830A

PATIENT
  Sex: Female

DRUGS (1)
  1. ULTOMIRIS [Suspect]
     Active Substance: RAVULIZUMAB-CWVZ
     Indication: Myasthenia gravis
     Route: 065

REACTIONS (23)
  - Diabetes mellitus [Unknown]
  - Appendicitis [Unknown]
  - Choking sensation [Unknown]
  - Headache [Unknown]
  - Asthenia [Unknown]
  - Bradykinesia [Unknown]
  - Oxygen saturation abnormal [Unknown]
  - Eyelid ptosis [Unknown]
  - Gait disturbance [Unknown]
  - Depressed mood [Unknown]
  - Pyrexia [Unknown]
  - Abdominal pain [Unknown]
  - Generalised oedema [Unknown]
  - Urinary tract infection [Unknown]
  - Fatigue [Unknown]
  - Rhinorrhoea [Unknown]
  - Nasal congestion [Unknown]
  - Dyspnoea [Unknown]
  - Insomnia [Unknown]
  - Memory impairment [Unknown]
  - Heart rate increased [Unknown]
  - Thyroid disorder [Unknown]
  - Weight decreased [Unknown]

NARRATIVE: CASE EVENT DATE: 20241201
